FAERS Safety Report 9893045 (Version 2)
Quarter: 2015Q4

REPORT INFORMATION
  Report Type: Report from Study
  Country: US (occurrence: US)
  Receive Date: 20140213
  Receipt Date: 20151203
  Transmission Date: 20160305
  Serious: Yes (Death, Other)
  Sender: FDA-Public Use
  Company Number: US-ROCHE-1322321

PATIENT
  Age: 48 Year
  Sex: Female
  Weight: 54.48 kg

DRUGS (13)
  1. EMEND [Concomitant]
     Active Substance: APREPITANT
     Route: 042
  2. EMEND [Concomitant]
     Active Substance: APREPITANT
     Route: 048
  3. AVASTIN [Suspect]
     Active Substance: BEVACIZUMAB
     Indication: METASTASES TO LIVER
  4. XELODA [Suspect]
     Active Substance: CAPECITABINE
     Indication: COLON CANCER
     Dosage: PO FOR 14 DAYS STARTING ON THE EVENING OF DAY 1
     Route: 048
     Dates: start: 20100609
  5. XELODA [Suspect]
     Active Substance: CAPECITABINE
     Dosage: PO FOR 14 DAYS STARTING ON THE EVENING OF DAY 1
     Route: 048
     Dates: start: 20091007
  6. OXALIPLATIN. [Concomitant]
     Active Substance: OXALIPLATIN
     Route: 065
     Dates: start: 20090925, end: 20091204
  7. DECADRON [Concomitant]
     Active Substance: DEXAMETHASONE
     Route: 065
  8. CALCIUM GLUCONATE. [Concomitant]
     Active Substance: CALCIUM GLUCONATE
     Route: 065
  9. MAGNESIUM SULFATE. [Concomitant]
     Active Substance: MAGNESIUM SULFATE
     Route: 065
  10. OXALIPLATIN. [Concomitant]
     Active Substance: OXALIPLATIN
     Indication: COLON CANCER
     Route: 042
     Dates: start: 20100609, end: 20100712
  11. AVASTIN [Suspect]
     Active Substance: BEVACIZUMAB
     Indication: COLON CANCER
     Route: 042
     Dates: start: 20091120
  12. ALOXI [Concomitant]
     Active Substance: PALONOSETRON HYDROCHLORIDE
     Route: 065
  13. XELODA [Suspect]
     Active Substance: CAPECITABINE
     Indication: METASTASES TO LIVER
     Route: 048
     Dates: start: 20090925, end: 20091204

REACTIONS (9)
  - Fatigue [Unknown]
  - Dehydration [Unknown]
  - Death [Fatal]
  - Neutropenia [Unknown]
  - Vomiting [Unknown]
  - Nausea [Unknown]
  - Neuropathy peripheral [Unknown]
  - Rectal haemorrhage [Unknown]
  - Protein total [Unknown]

NARRATIVE: CASE EVENT DATE: 20111113
